APPROVED DRUG PRODUCT: MICARDIS HCT
Active Ingredient: HYDROCHLOROTHIAZIDE; TELMISARTAN
Strength: 12.5MG;80MG
Dosage Form/Route: TABLET;ORAL
Application: N021162 | Product #002 | TE Code: AB
Applicant: BOEHRINGER INGELHEIM
Approved: Nov 17, 2000 | RLD: Yes | RS: No | Type: RX